FAERS Safety Report 10763517 (Version 1)
Quarter: 2015Q1

REPORT INFORMATION
  Report Type: Spontaneous
  Country: US (occurrence: None)
  Receive Date: 20150129
  Receipt Date: 20150129
  Transmission Date: 20150721
  Serious: Yes (Hospitalization, Other)
  Sender: FDA-Public Use
  Company Number: 2014014097

PATIENT
  Age: 4 Year
  Sex: Male

DRUGS (4)
  1. KEPPRA [Suspect]
     Active Substance: LEVETIRACETAM
     Indication: SEIZURE
     Dosage: UNKNOWN DOSE
  2. CLONAZEPAM. [Concomitant]
     Active Substance: CLONAZEPAM
  3. LORAZEPAM. [Concomitant]
     Active Substance: LORAZEPAM
  4. DEPAKOTE [Concomitant]
     Active Substance: DIVALPROEX SODIUM

REACTIONS (4)
  - Drug ineffective [None]
  - Seizure [None]
  - Epistaxis [None]
  - Irritability [None]
